FAERS Safety Report 11597861 (Version 2)
Quarter: 2015Q4

REPORT INFORMATION
  Report Type: Spontaneous
  Country: US (occurrence: US)
  Receive Date: 20150916
  Receipt Date: 20151120
  Transmission Date: 20160304
  Serious: No
  Sender: FDA-Public Use
  Company Number: US-ELI_LILLY_AND_COMPANY-US200801001156

PATIENT
  Age: 45 Year
  Sex: Female
  Weight: 58.73 kg

DRUGS (8)
  1. CHONDROITIN [Concomitant]
     Active Substance: CHONDROITIN
  2. CALCIUM [Concomitant]
     Active Substance: CALCIUM
     Dosage: 1500 MG, DAILY (1/D)
  3. GLUCOSAMINE [Concomitant]
     Active Substance: GLUCOSAMINE
  4. FORTEO [Suspect]
     Active Substance: TERIPARATIDE
     Indication: OSTEOPOROSIS
     Dosage: 20 UG, QD
     Route: 058
     Dates: start: 20080102, end: 20090102
  5. ESTRADIOL. [Concomitant]
     Active Substance: ESTRADIOL
  6. FORTEO [Suspect]
     Active Substance: TERIPARATIDE
     Dosage: 20 UG, QD
     Route: 058
     Dates: start: 201305
  7. VITAMIN D [Concomitant]
     Active Substance: CHOLECALCIFEROL
  8. MAGNESIUM [Concomitant]
     Active Substance: MAGNESIUM

REACTIONS (5)
  - Arthralgia [Recovered/Resolved]
  - Pain in extremity [Unknown]
  - Osteoarthritis [Unknown]
  - Chromaturia [Recovered/Resolved]
  - Muscle spasms [Recovering/Resolving]

NARRATIVE: CASE EVENT DATE: 20080103
